FAERS Safety Report 8365536-X (Version None)
Quarter: 2012Q2

REPORT INFORMATION
  Report Type: 
  Country: None (occurrence: None)
  Receive Date: 20120516
  Receipt Date: 20120502
  Transmission Date: 20120825
  Serious: Yes (Hospitalization, Other)
  Sender: FDA-Public Use
  Company Number: US-ELI_LILLY_AND_COMPANY-US200903005728

PATIENT
  Sex: Female

DRUGS (3)
  1. GEODON [Concomitant]
  2. CYMBALTA [Suspect]
     Indication: MAJOR DEPRESSION
     Dosage: UNK, UNKNOWN
     Dates: start: 20120201
  3. CYMBALTA [Suspect]
     Dosage: 30 MG, UNK
     Route: 048
     Dates: start: 20090315

REACTIONS (3)
  - PHARYNGEAL OEDEMA [None]
  - ABDOMINAL PAIN [None]
  - DEPRESSION [None]
